FAERS Safety Report 16031287 (Version 2)
Quarter: 2019Q1

REPORT INFORMATION
  Report Type: Spontaneous
  Country: JP (occurrence: JP)
  Receive Date: 20190304
  Receipt Date: 20190311
  Transmission Date: 20190418
  Serious: Yes (Other)
  Sender: FDA-Public Use
  Company Number: JP-PFIZER INC-2019073921

PATIENT
  Age: 8 Decade
  Sex: Female

DRUGS (1)
  1. LORBRENA [Suspect]
     Active Substance: LORLATINIB
     Dosage: 100 MG, DAILY
     Route: 048
     Dates: start: 20190206, end: 20190218

REACTIONS (2)
  - Hypertriglyceridaemia [Recovering/Resolving]
  - Autoimmune colitis [Unknown]

NARRATIVE: CASE EVENT DATE: 20190213
